FAERS Safety Report 8298529-1 (Version None)
Quarter: 2012Q2

REPORT INFORMATION
  Report Type: 
  Country: None (occurrence: None)
  Receive Date: 20120419
  Receipt Date: 20120410
  Transmission Date: 20120825
  Serious: Yes (Other)
  Sender: FDA-Public Use
  Company Number: US-ROCHE-784256

PATIENT
  Sex: Male
  Weight: 85.352 kg

DRUGS (2)
  1. ACCUTANE [Suspect]
     Dates: start: 19881201, end: 19890401
  2. ACCUTANE [Suspect]
     Indication: ACNE
     Route: 065
     Dates: start: 19920101, end: 19940301

REACTIONS (4)
  - COLITIS ULCERATIVE [None]
  - STRESS [None]
  - IRRITABLE BOWEL SYNDROME [None]
  - INFLAMMATORY BOWEL DISEASE [None]
